FAERS Safety Report 9147677 (Version 1)
Quarter: 2013Q1

REPORT INFORMATION
  Report Type: Spontaneous
  Country: US (occurrence: US)
  Receive Date: 20130307
  Receipt Date: 20130307
  Transmission Date: 20140127
  Serious: Yes (Hospitalization)
  Sender: FDA-Public Use
  Company Number: US-LUNDBECK-DKLU1089341

PATIENT
  Sex: Female

DRUGS (1)
  1. SABRIL [Suspect]
     Indication: GRAND MAL CONVULSION
     Dates: start: 201010

REACTIONS (1)
  - Surgery [Unknown]
